FAERS Safety Report 11734227 (Version 1)
Quarter: 2015Q4

REPORT INFORMATION
  Report Type: Spontaneous
  Country: VN (occurrence: VN)
  Receive Date: 20151113
  Receipt Date: 20151113
  Transmission Date: 20160304
  Serious: Yes (Other)
  Sender: FDA-Public Use
  Company Number: VN-009507513-1511VNM001949

PATIENT
  Age: 75 Year
  Sex: Female

DRUGS (1)
  1. HYZAAR [Suspect]
     Active Substance: HYDROCHLOROTHIAZIDE\LOSARTAN POTASSIUM
     Dosage: ONE TABLET OF 12.5/50MG, ONCE A DAY
     Route: 048
     Dates: start: 20151020

REACTIONS (4)
  - Hearing impaired [Recovering/Resolving]
  - Throat irritation [Recovering/Resolving]
  - Tinnitus [Recovering/Resolving]
  - Cough [Recovering/Resolving]

NARRATIVE: CASE EVENT DATE: 2015
